FAERS Safety Report 5716462-3 (Version None)
Quarter: 2008Q2

REPORT INFORMATION
  Report Type: 
  Country: None (occurrence: None)
  Receive Date: 20080424
  Receipt Date: 20080421
  Transmission Date: 20081010
  Serious: Yes (Life-Threatening, Hospitalization)
  Sender: FDA-Public Use
  Company Number: FR-WYE-G01432208

PATIENT
  Sex: Male

DRUGS (5)
  1. TAZOCILLINE [Suspect]
     Indication: MEDIASTINITIS
     Route: 042
     Dates: start: 20071227, end: 20080115
  2. AMIKACIN [Concomitant]
     Dosage: UNKNOWN
     Dates: start: 20071227
  3. FLAGYL [Concomitant]
     Dosage: UNKNOWN
     Dates: start: 20071227
  4. CORDARONE [Suspect]
     Indication: ATRIAL FLUTTER
     Dosage: 300 MG AND THEN 600 MG/24H
     Route: 042
     Dates: start: 20080109, end: 20080101
  5. CORDARONE [Suspect]
     Dates: start: 20080101, end: 20080124

REACTIONS (3)
  - BRONCHOALVEOLAR LAVAGE ABNORMAL [None]
  - EOSINOPHILIA [None]
  - EOSINOPHILIC PNEUMONIA [None]
